FAERS Safety Report 7230251-2 (Version None)
Quarter: 2011Q1

REPORT INFORMATION
  Report Type: 
  Country: None (occurrence: None)
  Receive Date: 20110118
  Receipt Date: 20110114
  Transmission Date: 20110831
  Serious: No
  Sender: FDA-Public Use
  Company Number: US-PFIZER INC-2011010051

PATIENT
  Sex: Female

DRUGS (1)
  1. XALATAN [Suspect]
     Indication: ABNORMAL SENSATION IN EYE
     Dosage: 1 GTT IN EACH EYE, 1X/DAY
     Route: 047
     Dates: start: 19800101

REACTIONS (3)
  - EYELID IRRITATION [None]
  - ERYTHEMA OF EYELID [None]
  - DARK CIRCLES UNDER EYES [None]
